FAERS Safety Report 9004608 (Version 1)
Quarter: 2013Q1

REPORT INFORMATION
  Report Type: Spontaneous
  Country: US (occurrence: None)
  Receive Date: 20130103
  Receipt Date: 20130103
  Transmission Date: 20140127
  Serious: No
  Sender: FDA-Public Use
  Company Number: None

PATIENT
  Sex: Female
  Weight: 111.59 kg

DRUGS (1)
  1. VIIBRYD [Suspect]
     Indication: HEADACHE
     Dosage: 40MG QD PO
     Route: 048
     Dates: start: 20121206, end: 20121228

REACTIONS (4)
  - Dyspepsia [None]
  - Vertigo [None]
  - Nightmare [None]
  - Sleep disorder [None]
